FAERS Safety Report 22275089 (Version 5)
Quarter: 2024Q2

REPORT INFORMATION
  Report Type: Spontaneous
  Country: US (occurrence: US)
  Receive Date: 20230502
  Receipt Date: 20240531
  Transmission Date: 20240716
  Serious: Yes (Other)
  Sender: FDA-Public Use
  Company Number: US-PFIZER INC-PV202200126254

PATIENT
  Age: 75 Year
  Sex: Female

DRUGS (9)
  1. IBRANCE [Suspect]
     Active Substance: PALBOCICLIB
     Indication: Breast cancer stage IV
     Dosage: 100 MG, (NOT A BREAK IN DOSING)
     Route: 048
  2. IBRANCE [Suspect]
     Active Substance: PALBOCICLIB
     Indication: Renal cancer stage IV
     Dosage: 100 MG, 1X/DAY
     Route: 048
     Dates: start: 20220121
  3. IBRANCE [Suspect]
     Active Substance: PALBOCICLIB
     Dosage: 100 MG, 1X/DAY
     Route: 048
     Dates: start: 20221011
  4. IBRANCE [Suspect]
     Active Substance: PALBOCICLIB
     Dosage: 125 MG, CYCLIC (D1- 21)
     Route: 048
  5. IBRANCE [Suspect]
     Active Substance: PALBOCICLIB
     Dosage: 100 MG, 1X/DAY (ONCE DAILY FOR 21 DAYS WITH 7 DAY BREAK)
     Route: 048
     Dates: start: 20230131
  6. IBRANCE [Suspect]
     Active Substance: PALBOCICLIB
     Dosage: 100 MG, 1X/DAY (ONCE DAILY FOR 21 DAYS WITH 7 DAY BREAK)
     Route: 048
     Dates: start: 20230417
  7. IBRANCE [Suspect]
     Active Substance: PALBOCICLIB
     Dosage: 75 MG, 1X/DAY (ONCE DAILY FOR 21 DAYS WITH 7 DAY BREAK)
     Route: 048
     Dates: start: 20231204
  8. IBRANCE [Suspect]
     Active Substance: PALBOCICLIB
     Dosage: 75 MG, 1X/DAY (ONCE DAILY FOR 21 DAYS WITH 7 DAY BREAK)
     Route: 048
     Dates: start: 20231205
  9. ARIMIDEX [Concomitant]
     Active Substance: ANASTROZOLE
     Indication: Breast cancer female
     Dosage: 1MG PO D1- 28 Q28 X 12
     Route: 048

REACTIONS (3)
  - Fall [Unknown]
  - Joint injury [Unknown]
  - Off label use [Unknown]
